FAERS Safety Report 9493243 (Version 1)
Quarter: 2013Q3

REPORT INFORMATION
  Report Type: Spontaneous
  Country: DE (occurrence: DE)
  Receive Date: 20130902
  Receipt Date: 20130902
  Transmission Date: 20140515
  Serious: Yes (Other)
  Sender: FDA-Public Use
  Company Number: PHHY2013DE094887

PATIENT
  Sex: Male

DRUGS (3)
  1. TEGRETOL RETARD [Suspect]
     Dosage: UNK UKN, UNK
     Dates: start: 2003
  2. MIRTAZAPINE [Interacting]
     Dosage: UNK UKN, UNK
     Dates: start: 201307
  3. INSIDON [Concomitant]

REACTIONS (4)
  - Chest discomfort [Unknown]
  - Pulmonary function test decreased [Unknown]
  - Dyspnoea [Unknown]
  - Drug interaction [Unknown]
